FAERS Safety Report 20189923 (Version 1)
Quarter: 2021Q4

REPORT INFORMATION
  Report Type: Spontaneous
  Country: US (occurrence: US)
  Receive Date: 20211215
  Receipt Date: 20211215
  Transmission Date: 20220303
  Serious: Yes (Other)
  Sender: FDA-Public Use
  Company Number: US-PFIZER INC-202101714064

PATIENT
  Age: 82 Year
  Sex: Male

DRUGS (1)
  1. VYNDAMAX [Suspect]
     Active Substance: TAFAMIDIS
     Dosage: 61 MG

REACTIONS (21)
  - Atrial fibrillation [Unknown]
  - Arteriosclerosis coronary artery [Unknown]
  - Aortic thrombosis [Unknown]
  - Neurodegenerative disorder [Unknown]
  - Cardiac failure congestive [Unknown]
  - Ischaemic cardiomyopathy [Unknown]
  - Basal cell carcinoma [Unknown]
  - Cardiac amyloidosis [Unknown]
  - Chronic kidney disease [Unknown]
  - Cognitive disorder [Unknown]
  - Amnesia [Unknown]
  - Hypertension [Unknown]
  - Aortic aneurysm [Unknown]
  - Ejection fraction decreased [Unknown]
  - Hypertensive heart disease [Unknown]
  - Vitamin B12 deficiency [Unknown]
  - Vitamin B1 deficiency [Unknown]
  - Hyperlipidaemia [Unknown]
  - Inborn error of metabolism [Unknown]
  - Hyperparathyroidism secondary [Unknown]
  - Blood parathyroid hormone increased [Unknown]
